FAERS Safety Report 9171562 (Version 3)
Quarter: 2013Q3

REPORT INFORMATION
  Report Type: Spontaneous
  Country: US (occurrence: US)
  Receive Date: 20130319
  Receipt Date: 20130812
  Transmission Date: 20140515
  Serious: Yes (Death, Hospitalization)
  Sender: FDA-Public Use
  Company Number: US-GLAXOSMITHKLINE-A1016262A

PATIENT
  Age: 62 Year
  Sex: Female

DRUGS (1)
  1. AVANDIA [Suspect]
     Indication: DIABETES MELLITUS
     Dosage: 4MG TWICE PER DAY
     Route: 048
     Dates: start: 20051206, end: 20080907

REACTIONS (5)
  - Cerebrovascular disorder [Fatal]
  - Arteriosclerosis [Fatal]
  - Renal failure chronic [Fatal]
  - Cerebrovascular accident [Unknown]
  - Transient ischaemic attack [Unknown]
